FAERS Safety Report 19693005 (Version 1)
Quarter: 2021Q3

REPORT INFORMATION
  Report Type: Spontaneous
  Country: US (occurrence: US)
  Receive Date: 20210812
  Receipt Date: 20210812
  Transmission Date: 20211014
  Serious: Yes (Other)
  Sender: FDA-Public Use
  Company Number: US-TEVA-2021-US-1940197

PATIENT
  Age: 69 Year
  Sex: Female

DRUGS (16)
  1. CARBOPLATIN. [Suspect]
     Active Substance: CARBOPLATIN
     Indication: OVARIAN CANCER
     Dosage: WITH DOCETAXEL FOR 8 CYCLES
     Route: 065
  2. DOCETAXEL. [Suspect]
     Active Substance: DOCETAXEL
     Indication: OVARIAN CANCER
     Dosage: RECEIVED 8 CYCLES
     Route: 065
  3. KETAMINE [Suspect]
     Active Substance: KETAMINE
     Indication: NEURALGIA
     Dosage: 30 MILLIGRAM DAILY; THREE TIMES DAILY
     Route: 048
  4. KETAMINE [Suspect]
     Active Substance: KETAMINE
     Dosage: 15 MILLIGRAM DAILY; THREE TIMES DAILY
     Route: 048
  5. IFOSFAMIDE. [Suspect]
     Active Substance: IFOSFAMIDE
     Indication: OVARIAN CANCER
     Dosage: RECEIVED 5 CYCLES WITH PACLITAXEL
     Route: 065
  6. METHADONE [Concomitant]
     Active Substance: METHADONE HYDROCHLORIDE
     Indication: CANCER PAIN
     Dosage: 40 MILLIGRAM DAILY;
     Route: 048
  7. LIPODERM [Suspect]
     Active Substance: BACLOFEN\CYCLOBENZAPRINE\DICLOFENAC\GABAPENTIN\TETRACAINE
     Indication: CANCER PAIN
     Dosage: 3 ML DAILY; THREE TIMES DAILY
     Route: 061
  8. LIPODERM [Suspect]
     Active Substance: BACLOFEN\CYCLOBENZAPRINE\DICLOFENAC\GABAPENTIN\TETRACAINE
     Indication: CANCER PAIN
     Dosage: 6 ML DAILY; SIX TIMES DAILY
     Route: 061
  9. FENTANYL. [Suspect]
     Active Substance: FENTANYL
     Indication: CANCER PAIN
     Route: 065
  10. PACLITAXEL. [Suspect]
     Active Substance: PACLITAXEL
     Indication: OVARIAN CANCER
     Dosage: RECEIVED 5 CYCLES WITH IFOSFAMIDE
     Route: 065
  11. PREGABALIN. [Suspect]
     Active Substance: PREGABALIN
     Indication: CANCER PAIN
     Dosage: 100 MILLIGRAM DAILY;
     Route: 065
  12. TAXOL [Suspect]
     Active Substance: PACLITAXEL
     Indication: OVARIAN CANCER
     Dosage: RECEIVED 5 CYCLES
     Route: 065
  13. CARBOPLATIN. [Suspect]
     Active Substance: CARBOPLATIN
     Indication: OVARIAN CANCER
     Route: 065
  14. KETAMINE [Suspect]
     Active Substance: KETAMINE
     Indication: CANCER PAIN
     Dosage: 20 MILLIGRAM DAILY;
     Route: 048
  15. METHADONE [Concomitant]
     Active Substance: METHADONE HYDROCHLORIDE
     Indication: CANCER PAIN
     Dosage: 10 MILLIGRAM DAILY;
     Route: 048
  16. METHADONE [Concomitant]
     Active Substance: METHADONE HYDROCHLORIDE
     Indication: CANCER PAIN
     Dosage: THREE TIMES DAILY
     Route: 048

REACTIONS (3)
  - Neuropathy peripheral [Unknown]
  - Drug ineffective [Unknown]
  - Abnormal dreams [Unknown]
